FAERS Safety Report 10579823 (Version 3)
Quarter: 2014Q4

REPORT INFORMATION
  Report Type: Spontaneous
  Country: US (occurrence: US)
  Receive Date: 20141112
  Receipt Date: 20141215
  Transmission Date: 20150529
  Serious: No
  Sender: FDA-Public Use
  Company Number: US-SHIRE-US201407405

PATIENT
  Age: 6 Year
  Sex: Female
  Weight: 21.77 kg

DRUGS (6)
  1. VYVANSE [Suspect]
     Active Substance: LISDEXAMFETAMINE DIMESYLATE
     Dosage: 40 MG (TWO 20 MG), 1X/DAY:QD
     Route: 048
     Dates: start: 20141025
  2. AMOXICILLIN. [Concomitant]
     Active Substance: AMOXICILLIN
     Indication: SINUSITIS
     Dosage: 1 DF, 1X/DAY:QD
     Route: 048
     Dates: start: 20141022
  3. RISPERDAL [Concomitant]
     Active Substance: RISPERIDONE
     Indication: SLEEP DISORDER
     Dosage: 1 DF (1 FILL), 1X/DAY:QD (AT NIGHT)
     Route: 048
     Dates: start: 2012
  4. CLONIDINE. [Concomitant]
     Active Substance: CLONIDINE
     Indication: SLEEP DISORDER
     Dosage: 0.1 MG, 1X/DAY:QD (AT NIGHT)
     Route: 048
     Dates: start: 20141022
  5. VYVANSE [Suspect]
     Active Substance: LISDEXAMFETAMINE DIMESYLATE
     Indication: ATTENTION DEFICIT/HYPERACTIVITY DISORDER
     Dosage: 20 MG, 1X/DAY:QD
     Route: 048
     Dates: start: 20141023, end: 20141024
  6. ZYRTEC [Concomitant]
     Active Substance: CETIRIZINE HYDROCHLORIDE
     Indication: HYPERSENSITIVITY
     Dosage: 5 ML (1 TEASPOON), 1X/DAY:QD
     Route: 048
     Dates: start: 201410

REACTIONS (4)
  - Abdominal pain upper [Recovered/Resolved]
  - Drug titration error [Not Recovered/Not Resolved]
  - Drug effect decreased [Not Recovered/Not Resolved]
  - Product quality issue [Unknown]

NARRATIVE: CASE EVENT DATE: 201410
